FAERS Safety Report 8396680 (Version 2)
Quarter: 2013Q1

REPORT INFORMATION
  Report Type: Report from Study
  Country: FR (occurrence: FR)
  Receive Date: 20120208
  Receipt Date: 20130205
  Transmission Date: 20140127
  Serious: Yes (Death, Other)
  Sender: FDA-Public Use
  Company Number: PHHY2012FR010017

PATIENT
  Sex: 0

DRUGS (1)
  1. AFINITOR [Suspect]
     Indication: RENAL CELL CARCINOMA

REACTIONS (7)
  - Death [Fatal]
  - Lymphopenia [Unknown]
  - Anaemia [Unknown]
  - Neutrophilia [Unknown]
  - Asthenia [Unknown]
  - Hypertriglyceridaemia [Unknown]
  - Gamma-glutamyltransferase increased [Unknown]
